FAERS Safety Report 9695744 (Version 1)
Quarter: 2013Q4

REPORT INFORMATION
  Report Type: Report from Study
  Country: BR (occurrence: BR)
  Receive Date: 20131119
  Receipt Date: 20131119
  Transmission Date: 20140711
  Serious: Yes (Life-Threatening)
  Sender: FDA-Public Use
  Company Number: BR-009507513-1311BRA007056

PATIENT
  Sex: Male

DRUGS (11)
  1. PEGINTERFERON ALFA-2B [Suspect]
     Indication: HEPATITIS C
     Dosage: UNK
     Route: 058
     Dates: start: 2008
  2. RIBAVIRIN [Suspect]
     Indication: HEPATITIS C
     Dosage: UNK
     Dates: start: 2008
  3. RIBAVIRIN [Suspect]
     Dosage: UNK
  4. PEGASYS [Suspect]
     Indication: HEPATITIS C
     Dosage: 80 MICROGRAM, UNK
     Dates: start: 2008
  5. PEGASYS [Suspect]
     Dosage: 180 MICROGRAM, UNK
  6. PEGASYS [Suspect]
     Dosage: UNK
     Dates: start: 201303
  7. RIBAVIRIN [Suspect]
     Indication: HEPATITIS C
     Dosage: 250 MG, UNK
     Dates: start: 201303
  8. BOCEPREVIR [Concomitant]
     Indication: HEPATITIS C
     Dosage: UNK
     Dates: start: 201303
  9. FOLIC ACID [Concomitant]
  10. PANTOPRAZOLE [Concomitant]
     Indication: GASTRITIS
  11. VITAMIN B COMPLEX [Concomitant]

REACTIONS (2)
  - Drug ineffective [Unknown]
  - Viral load increased [Recovered/Resolved]
